FAERS Safety Report 6028797-8 (Version None)
Quarter: 2009Q1

REPORT INFORMATION
  Report Type: 
  Country: None (occurrence: None)
  Receive Date: 20090106
  Receipt Date: 20081230
  Transmission Date: 20090719
  Serious: Yes (Hospitalization, Other)
  Sender: FDA-Public Use
  Company Number: B0552608A

PATIENT
  Age: 61 Year
  Sex: Female

DRUGS (4)
  1. MELPHALAN [Suspect]
     Indication: AUTOLOGOUS BONE MARROW TRANSPLANTATION THERAPY
     Dosage: 170MG PER DAY
     Route: 042
     Dates: start: 20081028, end: 20081028
  2. MERONEM [Concomitant]
     Indication: PROPHYLAXIS
     Dosage: 3G PER DAY
     Route: 042
     Dates: start: 20081028, end: 20081115
  3. PENTAMIDINE [Concomitant]
     Indication: PROPHYLAXIS
     Dosage: 300MG PER DAY
     Route: 042
     Dates: start: 20081027, end: 20081027
  4. ZOFRAN [Concomitant]
     Indication: VOMITING
     Dosage: 24MG PER DAY
     Route: 042
     Dates: start: 20081028, end: 20081030

REACTIONS (3)
  - FACE OEDEMA [None]
  - HYPOTENSION [None]
  - PYREXIA [None]
